FAERS Safety Report 9788567 (Version 1)
Quarter: 2013Q4

REPORT INFORMATION
  Report Type: Spontaneous
  Country: FR (occurrence: FR)
  Receive Date: 20131230
  Receipt Date: 20131230
  Transmission Date: 20140711
  Serious: Yes (Hospitalization)
  Sender: FDA-Public Use
  Company Number: FR-TEVA-452509ISR

PATIENT
  Age: 85 Year
  Sex: Female

DRUGS (9)
  1. METHOTREXATE TEVA [Suspect]
     Indication: CENTRAL NERVOUS SYSTEM LYMPHOMA
     Route: 041
     Dates: start: 20131108, end: 20131122
  2. LASILIX [Concomitant]
  3. CRESTOR [Concomitant]
  4. APROVEL [Concomitant]
  5. BISOPROLOL [Concomitant]
  6. KEPPRA [Concomitant]
  7. LEVOTHYROX [Concomitant]
  8. ALLOPURINOL [Concomitant]
  9. NOVORAPID [Concomitant]

REACTIONS (3)
  - Renal failure acute [Recovering/Resolving]
  - Oliguria [Recovering/Resolving]
  - Weight increased [Recovering/Resolving]
